FAERS Safety Report 4313213-4 (Version None)
Quarter: 2004Q1

REPORT INFORMATION
  Report Type: 
  Country: None (occurrence: None)
  Receive Date: 20040305
  Receipt Date: 20040202
  Transmission Date: 20041129
  Serious: Yes (Hospitalization)
  Sender: FDA-Public Use
  Company Number: A-US2004-05068

PATIENT
  Age: 4 Month
  Sex: Male

DRUGS (1)
  1. TRACLEER [Suspect]
     Indication: PULMONARY HYPERTENSION
     Dosage: 15 MG, QD, ORAL
     Route: 048
     Dates: start: 20040101

REACTIONS (4)
  - ABDOMINAL PAIN [None]
  - COLITIS [None]
  - HAEMATOCHEZIA [None]
  - INTUSSUSCEPTION [None]
